FAERS Safety Report 12949709 (Version 2)
Quarter: 2017Q2

REPORT INFORMATION
  Report Type: Spontaneous
  Country: US (occurrence: US)
  Receive Date: 20161116
  Receipt Date: 20170516
  Transmission Date: 20170830
  Serious: Yes (Other)
  Sender: FDA-Public Use
  Company Number: US-TEVA-711503USA

PATIENT
  Sex: Female

DRUGS (1)
  1. PROAIR HFA [Suspect]
     Active Substance: ALBUTEROL SULFATE
     Route: 065

REACTIONS (4)
  - Choking [Unknown]
  - Product cleaning inadequate [Unknown]
  - Vomiting [Unknown]
  - Product physical issue [Unknown]

NARRATIVE: CASE EVENT DATE: 2016
